FAERS Safety Report 10258319 (Version 2)
Quarter: 2014Q3

REPORT INFORMATION
  Report Type: Spontaneous
  Country: US (occurrence: US)
  Receive Date: 20140625
  Receipt Date: 20140703
  Transmission Date: 20150326
  Serious: No
  Sender: FDA-Public Use
  Company Number: US-009507513-1406USA010535

PATIENT
  Sex: Female

DRUGS (3)
  1. SIMVASTATIN TABLETS, USP [Concomitant]
     Active Substance: SIMVASTATIN
     Dosage: UNK
     Route: 048
  2. PROVENTIL [Suspect]
     Active Substance: ALBUTEROL
     Indication: HISTOPLASMOSIS
     Dosage: UNK, PRN
     Route: 055
     Dates: start: 2009
  3. COMBIVENT [Concomitant]
     Active Substance: ALBUTEROL SULFATE\IPRATROPIUM BROMIDE
     Dosage: UNK

REACTIONS (4)
  - Product container issue [Unknown]
  - Drug administration error [Unknown]
  - Influenza like illness [Not Recovered/Not Resolved]
  - Seasonal allergy [Not Recovered/Not Resolved]
